FAERS Safety Report 6053142-1 (Version None)
Quarter: 2009Q1

REPORT INFORMATION
  Report Type: 
  Country: None (occurrence: None)
  Receive Date: 20090123
  Receipt Date: 20090113
  Transmission Date: 20090719
  Serious: Yes (Life-Threatening)
  Sender: FDA-Public Use
  Company Number: GXKR2009GB00692

PATIENT
  Age: 79 Year
  Sex: Female

DRUGS (9)
  1. AMLODIPINE [Suspect]
     Dosage: 5 MG, QD, ORAL
     Route: 048
  2. ACETYLSALICYLIC ACID SRT [Suspect]
     Dosage: 75 MG, ORAL
     Route: 048
  3. LANSOPRAZOLE [Suspect]
     Dosage: 30 MG, QD, ORAL
     Route: 048
  4. RANITIDINE [Suspect]
     Dosage: 300 MG, ORAL
     Route: 048
  5. TEMAZEPAM [Suspect]
     Dosage: 20 MG, ORAL
     Route: 048
  6. VALSARTAN [Suspect]
     Dosage: 80 MG, ORAL
     Route: 048
  7. ATORVASTATIN CALCIUM [Suspect]
     Dosage: 10 MG, ORAL
     Route: 048
  8. FLUTICASONE PROPIONATE W/SALMETEROL XINAFOATE [Suspect]
     Dosage: 4 DF, INHALATION
     Route: 055
  9. VENTOLIN [Suspect]
     Dosage: 800 UG, INHALATION
     Route: 055

REACTIONS (2)
  - ASTHMA [None]
  - LOWER RESPIRATORY TRACT INFECTION [None]
